FAERS Safety Report 17302933 (Version 1)
Quarter: 2020Q3

REPORT INFORMATION
  Report Type: Spontaneous
  Country: US (occurrence: US)
  Receive Date: 20200122
  Receipt Date: 20200122
  Transmission Date: 20201104
  Serious: Yes (Other)
  Sender: FDA-Public Use
  Company Number: US-ELI_LILLY_AND_COMPANY-US202001007448

PATIENT

DRUGS (2)
  1. TADALAFIL. [Suspect]
     Active Substance: TADALAFIL
     Indication: PRODUCT USED FOR UNKNOWN INDICATION
     Dosage: UNK, UNKNOWN
     Route: 065
  2. OXYCODEGOL. [Suspect]
     Active Substance: OXYCODEGOL
     Indication: BACK PAIN
     Dosage: 100 MG, UNKNOWN (Q12H)
     Route: 065

REACTIONS (1)
  - Blindness unilateral [Recovered/Resolved]
